FAERS Safety Report 21867577 (Version 1)
Quarter: 2023Q1

REPORT INFORMATION
  Report Type: Spontaneous
  Country: PK (occurrence: PK)
  Receive Date: 20230116
  Receipt Date: 20230116
  Transmission Date: 20230418
  Serious: Yes (Other)
  Sender: FDA-Public Use
  Company Number: PK-002147023-NVSC2023PK007042

PATIENT
  Sex: Male

DRUGS (3)
  1. MYCOPHENOLATE MOFETIL [Suspect]
     Active Substance: MYCOPHENOLATE MOFETIL
     Indication: Product used for unknown indication
     Dosage: UNK
     Route: 065
  2. CYCLOSPORINE [Suspect]
     Active Substance: CYCLOSPORINE
     Indication: Product used for unknown indication
     Dosage: UNK
     Route: 065
  3. METHYLPREDNISOLONE ACETATE [Suspect]
     Active Substance: METHYLPREDNISOLONE ACETATE
     Indication: Product used for unknown indication
     Dosage: UNK
     Route: 065

REACTIONS (2)
  - Acute graft versus host disease [Not Recovered/Not Resolved]
  - Drug resistance [Not Recovered/Not Resolved]
